FAERS Safety Report 6628683-6 (Version None)
Quarter: 2010Q1

REPORT INFORMATION
  Report Type: 
  Country: None (occurrence: None)
  Receive Date: 20100311
  Receipt Date: 20100302
  Transmission Date: 20100710
  Serious: Yes (Other)
  Sender: FDA-Public Use
  Company Number: US-BRISTOL-MYERS SQUIBB COMPANY-14998504

PATIENT
  Sex: Male

DRUGS (2)
  1. ONGLYZA [Suspect]
  2. METFORMIN [Concomitant]

REACTIONS (4)
  - LIP SWELLING [None]
  - OROPHARYNGEAL PAIN [None]
  - SWELLING FACE [None]
  - SWOLLEN TONGUE [None]
